FAERS Safety Report 8358539 (Version 27)
Quarter: 2015Q2

REPORT INFORMATION
  Report Type: Report from Study
  Country: CA (occurrence: CA)
  Receive Date: 20120127
  Receipt Date: 20150429
  Transmission Date: 20150821
  Serious: Yes (Other)
  Sender: FDA-Public Use
  Company Number: PHHY2012CA004890

PATIENT
  Age: 50 Year
  Sex: Female

DRUGS (3)
  1. SANDOSTATIN LAR DEPOT [Suspect]
     Active Substance: OCTREOTIDE ACETATE
     Dosage: 40 MG, QMO
     Route: 030
  2. SANDOSTATIN LAR DEPOT [Suspect]
     Active Substance: OCTREOTIDE ACETATE
     Indication: ACROMEGALY
     Dosage: 40 MG, QMO (EVERY 4 WEEKS)
     Route: 030
     Dates: start: 20080606
  3. SANDOSTATIN LAR DEPOT [Suspect]
     Active Substance: OCTREOTIDE ACETATE
     Dosage: 40 MG, UNK
     Route: 030

REACTIONS (25)
  - Musculoskeletal pain [Unknown]
  - Burning sensation [Unknown]
  - Movement disorder [Unknown]
  - Influenza [Recovering/Resolving]
  - Heart rate increased [Unknown]
  - Injection site pain [Recovered/Resolved]
  - Blood pressure increased [Unknown]
  - Insomnia [Unknown]
  - Chondroma [Unknown]
  - Osteoarthritis [Unknown]
  - Pain [Unknown]
  - Headache [Unknown]
  - Arthralgia [Unknown]
  - Exostosis [Unknown]
  - Cardiomegaly [Unknown]
  - Sleep apnoea syndrome [Unknown]
  - Chest discomfort [Recovered/Resolved]
  - Injection site bruising [Recovered/Resolved]
  - Injection site mass [Unknown]
  - Myalgia [Unknown]
  - Periarticular disorder [Unknown]
  - Injection site mass [Recovered/Resolved]
  - Cough [Recovering/Resolving]
  - Fatigue [Recovered/Resolved]
  - Alopecia [Unknown]

NARRATIVE: CASE EVENT DATE: 201410
